FAERS Safety Report 9335083 (Version 2)
Quarter: 2013Q3

REPORT INFORMATION
  Report Type: Spontaneous
  Country: US (occurrence: US)
  Receive Date: 20130606
  Receipt Date: 20130918
  Transmission Date: 20140515
  Serious: Yes (Hospitalization)
  Sender: FDA-Public Use
  Company Number: US-GLAXOSMITHKLINE-A1001720A

PATIENT
  Age: 45 Year
  Sex: Female
  Weight: 81.4 kg

DRUGS (1)
  1. AVANDIA [Suspect]
     Indication: DIABETES MELLITUS
     Route: 048
     Dates: start: 1999, end: 2008

REACTIONS (5)
  - Cardiac failure congestive [Unknown]
  - Myocardial infarction [Unknown]
  - Renal failure acute [Unknown]
  - Myocardial ischaemia [Unknown]
  - Cerebrovascular accident [Unknown]
